FAERS Safety Report 8490098-6 (Version None)
Quarter: 2012Q3

REPORT INFORMATION
  Report Type: 
  Country: None (occurrence: None)
  Receive Date: 20120705
  Receipt Date: 20120705
  Transmission Date: 20120928
  Serious: Yes (Death, Other)
  Sender: FDA-Public Use
  Company Number: DE-SANOFI-AVENTIS-2012SA042896

PATIENT
  Age: 79 Year
  Sex: Female

DRUGS (1)
  1. TAXOTERE [Suspect]
     Route: 041
     Dates: start: 20120202, end: 20120202

REACTIONS (6)
  - SEPSIS [None]
  - DUODENAL ULCER [None]
  - PNEUMONIA [None]
  - PLEURISY [None]
  - GASTRIC ULCER [None]
  - HEPATIC FAILURE [None]
